FAERS Safety Report 15340708 (Version 1)
Quarter: 2018Q3

REPORT INFORMATION
  Report Type: Spontaneous
  Country: FR (occurrence: FR)
  Receive Date: 20180831
  Receipt Date: 20180831
  Transmission Date: 20181010
  Serious: Yes (Congenital Anomaly)
  Sender: FDA-Public Use
  Company Number: PHHY2018FR081488

PATIENT
  Sex: Male

DRUGS (4)
  1. LEVETIRACETAM. [Suspect]
     Active Substance: LEVETIRACETAM
     Indication: FOETAL EXPOSURE DURING PREGNANCY
     Dosage: MATERNAL DOSE: 3.5 MG, QD
     Route: 064
     Dates: start: 20171023, end: 20180706
  2. SERESTA [Suspect]
     Active Substance: OXAZEPAM
     Indication: ANXIETY
     Dosage: MATERNAL DOSE: 10 MG, QD
     Route: 064
     Dates: start: 20180629, end: 20180706
  3. PAROXETINE. [Suspect]
     Active Substance: PAROXETINE
     Indication: ANXIETY
     Dosage: MATERNAL DOSE: 20 MG, QD
     Route: 064
     Dates: start: 20180502, end: 20180706
  4. URBANYL [Suspect]
     Active Substance: CLOBAZAM
     Indication: ANXIETY
     Dosage: MATERNAL DOSE: 1 DF, QD
     Route: 064
     Dates: start: 20180502, end: 20180629

REACTIONS (1)
  - Hamartoma [Recovered/Resolved]

NARRATIVE: CASE EVENT DATE: 20180706
